FAERS Safety Report 23731053 (Version 1)
Quarter: 2024Q2

REPORT INFORMATION
  Report Type: Spontaneous
  Country: US (occurrence: US)
  Receive Date: 20240411
  Receipt Date: 20240411
  Transmission Date: 20240715
  Serious: Yes (Hospitalization, Other)
  Sender: FDA-Public Use
  Company Number: US-CPL-004137

PATIENT
  Age: 52 Year
  Sex: Male

DRUGS (1)
  1. TIZANIDINE HYDROCHLORIDE [Suspect]
     Active Substance: TIZANIDINE HYDROCHLORIDE
     Indication: Back pain
     Dosage: 30-34 MG DAILY

REACTIONS (8)
  - Withdrawal syndrome [Unknown]
  - Acute myocardial infarction [Unknown]
  - Acute kidney injury [Unknown]
  - Substance use disorder [Unknown]
  - Withdrawal hypertension [Unknown]
  - Tachycardia [Unknown]
  - Hyperhidrosis [Unknown]
  - Anxiety [Unknown]
